FAERS Safety Report 17561199 (Version 1)
Quarter: 2020Q1

REPORT INFORMATION
  Report Type: Spontaneous
  Country: US (occurrence: US)
  Receive Date: 20200312
  Receipt Date: 20200312
  Transmission Date: 20200409
  Serious: Yes (Hospitalization)
  Sender: FDA-Public Use
  Company Number: None

PATIENT
  Age: 70 Year
  Sex: Female

DRUGS (1)
  1. IMATINIB 400MG [Suspect]
     Active Substance: IMATINIB
     Indication: GASTROINTESTINAL STROMAL TUMOUR
     Route: 048
     Dates: start: 20190115

REACTIONS (8)
  - Fatigue [None]
  - Pigmentation disorder [None]
  - Flatulence [None]
  - Energy increased [None]
  - Increased tendency to bruise [None]
  - Contusion [None]
  - Cholecystectomy [None]
  - Skin discolouration [None]

NARRATIVE: CASE EVENT DATE: 20200116
